FAERS Safety Report 14594728 (Version 1)
Quarter: 2018Q1

REPORT INFORMATION
  Report Type: Spontaneous
  Country: US (occurrence: US)
  Receive Date: 20180302
  Receipt Date: 20180302
  Transmission Date: 20180509
  Serious: No
  Sender: FDA-Public Use
  Company Number: US-AKORN PHARMACEUTICALS-2017AKN00325

PATIENT
  Sex: Male
  Weight: 100 kg

DRUGS (3)
  1. MYORISAN [Suspect]
     Active Substance: ISOTRETINOIN
     Indication: ACNE
     Dosage: 40 MG, 1X/DAY
     Dates: start: 20170105, end: 201702
  2. MYORISAN [Suspect]
     Active Substance: ISOTRETINOIN
     Dosage: 100 MG, 1X/DAY
     Dates: start: 201702, end: 20170313
  3. MYORISAN [Suspect]
     Active Substance: ISOTRETINOIN
     Dosage: 100 MG, 1X/DAY
     Dates: start: 20170202, end: 20170313

REACTIONS (2)
  - Pyogenic granuloma [Recovering/Resolving]
  - Arthralgia [Recovering/Resolving]

NARRATIVE: CASE EVENT DATE: 2017
